FAERS Safety Report 24239187 (Version 1)
Quarter: 2024Q3

REPORT INFORMATION
  Report Type: Spontaneous
  Country: RS (occurrence: RS)
  Receive Date: 20240822
  Receipt Date: 20240822
  Transmission Date: 20241016
  Serious: Yes (Other)
  Sender: BAUSCH AND LOMB
  Company Number: RS-BAUSCH-BL-2024-012524

PATIENT
  Age: 55 Year
  Sex: Female
  Weight: 75 kg

DRUGS (6)
  1. METFORMIN [Suspect]
     Active Substance: METFORMIN HYDROCHLORIDE
     Indication: Product used for unknown indication
     Route: 065
  2. ASPIRIN [Suspect]
     Active Substance: ASPIRIN
     Indication: Product used for unknown indication
     Route: 065
  3. ASPIRIN [Suspect]
     Active Substance: ASPIRIN
     Route: 048
  4. ASPIRIN [Suspect]
     Active Substance: ASPIRIN
     Route: 065
  5. RAMIPRIL [Suspect]
     Active Substance: RAMIPRIL
     Indication: Product used for unknown indication
     Route: 065
  6. AMILORIDE HYDROCHLORIDE\METHYCLOTHIAZIDE [Suspect]
     Active Substance: AMILORIDE HYDROCHLORIDE\METHYCLOTHIAZIDE
     Indication: Product used for unknown indication
     Dosage: EVERYDAY
     Route: 065

REACTIONS (6)
  - Blood pressure increased [Recovered/Resolved]
  - Chest discomfort [Recovered/Resolved]
  - Fatigue [Unknown]
  - Obesity [Unknown]
  - Oedema peripheral [Recovered/Resolved]
  - Blood glucose increased [Recovered/Resolved]
